FAERS Safety Report 7552205-9 (Version None)
Quarter: 2011Q2

REPORT INFORMATION
  Report Type: 
  Country: None (occurrence: None)
  Receive Date: 20110616
  Receipt Date: 20110607
  Transmission Date: 20111010
  Serious: Yes (Hospitalization)
  Sender: FDA-Public Use
  Company Number: JP-MERCK-1106USA01193

PATIENT
  Age: 64 Year
  Sex: Male
  Weight: 62 kg

DRUGS (8)
  1. TPN ELECTROLYTES IN PLASTIC CONTAINER [Concomitant]
     Indication: DECREASED APPETITE
     Route: 065
     Dates: start: 20110525
  2. PEPCID RPD [Suspect]
     Route: 048
     Dates: start: 20110419, end: 20110525
  3. LOXONIN [Concomitant]
     Route: 065
     Dates: start: 20110419
  4. CELECOXIB [Suspect]
     Indication: INTERVERTEBRAL DISC DISORDER
     Route: 048
     Dates: start: 20110419, end: 20110525
  5. ALINAMIN F (FURSULTIAMINE HYDROCHLORIDE) [Concomitant]
     Indication: DECREASED APPETITE
     Route: 065
  6. LOXONIN [Concomitant]
     Route: 065
     Dates: start: 20110516, end: 20110516
  7. LYRICA [Suspect]
     Indication: INTERVERTEBRAL DISC DISORDER
     Route: 048
     Dates: start: 20110419, end: 20110520
  8. VOLTAREN [Concomitant]
     Indication: INTERVERTEBRAL DISC DISORDER
     Route: 065
     Dates: start: 20110520, end: 20110528

REACTIONS (3)
  - SOMNOLENCE [None]
  - ENCEPHALOPATHY [None]
  - DIZZINESS [None]
